FAERS Safety Report 12160933 (Version 3)
Quarter: 2016Q2

REPORT INFORMATION
  Report Type: Report from Study
  Country: JP (occurrence: JP)
  Receive Date: 20160308
  Receipt Date: 20160426
  Transmission Date: 20160815
  Serious: Yes (Death, Hospitalization)
  Sender: FDA-Public Use
  Company Number: JP-DSJP-DSJ-2015-136810

PATIENT
  Sex: Female
  Weight: 55 kg

DRUGS (10)
  1. EDOXABAN [Suspect]
     Active Substance: EDOXABAN TOSYLATE
     Indication: DEEP VEIN THROMBOSIS
  2. PREDNISOLONE. [Concomitant]
     Active Substance: PREDNISOLONE
     Dosage: 35MG/DAY
     Route: 048
     Dates: start: 20150522, end: 20150604
  3. HEPARIN [Concomitant]
     Active Substance: HEPARIN SODIUM
     Dosage: UNK
     Route: 042
  4. EDOXABAN [Suspect]
     Active Substance: EDOXABAN TOSYLATE
     Indication: PULMONARY EMBOLISM
     Dosage: 30 MG, QD
     Route: 048
     Dates: start: 20150626, end: 20150705
  5. PREDNISOLONE. [Concomitant]
     Active Substance: PREDNISOLONE
     Dosage: 40MG/DAY
     Route: 048
     Dates: start: 20150508, end: 20150521
  6. PREDNISOLONE. [Concomitant]
     Active Substance: PREDNISOLONE
     Dosage: 50MG/DAY
     Route: 048
     Dates: start: 20150424, end: 20150507
  7. PREDNISOLONE. [Concomitant]
     Active Substance: PREDNISOLONE
     Dosage: 30MG/DAY
     Route: 048
     Dates: start: 20150605, end: 20150618
  8. PREDNISOLONE. [Concomitant]
     Active Substance: PREDNISOLONE
     Dosage: 25MG/DAY
     Route: 048
     Dates: start: 20150619, end: 20150704
  9. PREDNISOLONE. [Concomitant]
     Active Substance: PREDNISOLONE
     Dosage: 20MG/DAY
     Route: 048
     Dates: start: 20150703
  10. METHYLPREDNISOLONE. [Concomitant]
     Active Substance: METHYLPREDNISOLONE
     Dosage: 1600MG/DAY
     Route: 042
     Dates: start: 20150421, end: 20150423

REACTIONS (2)
  - Interstitial lung disease [Fatal]
  - Gastrointestinal haemorrhage [Recovering/Resolving]

NARRATIVE: CASE EVENT DATE: 20150421
